FAERS Safety Report 5669295-0 (Version None)
Quarter: 2008Q1

REPORT INFORMATION
  Report Type: 
  Country: None (occurrence: None)
  Receive Date: 20080317
  Receipt Date: 20080307
  Transmission Date: 20080703
  Serious: Yes (Hospitalization)
  Sender: FDA-Public Use
  Company Number: PHEH2008US02591

PATIENT
  Sex: Male

DRUGS (3)
  1. ZELNORM [Suspect]
     Dosage: 6 MG, BID
     Route: 048
  2. KLONOPIN [Concomitant]
  3. LYRICA [Concomitant]

REACTIONS (3)
  - CHEST PAIN [None]
  - HYPERTENSION [None]
  - HYPOAESTHESIA [None]
